FAERS Safety Report 24085885 (Version 1)
Quarter: 2024Q3

REPORT INFORMATION
  Report Type: Report from Study
  Country: DE (occurrence: DE)
  Receive Date: 20240712
  Receipt Date: 20240712
  Transmission Date: 20241017
  Serious: Yes (Other)
  Sender: SANDOZ
  Company Number: DE-002147023-NVSC2020DE045426

PATIENT
  Age: 47 Year
  Sex: Female

DRUGS (7)
  1. FILGRASTIM [Suspect]
     Active Substance: FILGRASTIM
     Indication: Stem cell donor
     Dosage: 4320 UG
     Route: 058
     Dates: start: 20131114
  2. FILGRASTIM [Suspect]
     Active Substance: FILGRASTIM
     Dosage: 4320 UG
     Route: 058
     Dates: start: 20131118
  3. BISOPROLOL [Concomitant]
     Active Substance: BISOPROLOL\BISOPROLOL FUMARATE
     Indication: Hypertension
     Dosage: UNK
     Route: 048
  4. JOD [Concomitant]
     Indication: Hypothyroidic goitre
     Dosage: 150 OT
     Route: 048
     Dates: start: 201303
  5. LEVOTHYROXINE SODIUM [Concomitant]
     Active Substance: LEVOTHYROXINE SODIUM
     Indication: Hypothyroidic goitre
     Dosage: L-THYROXIN 7
     Route: 048
     Dates: start: 201303
  6. ACETAMINOPHEN [Concomitant]
     Active Substance: ACETAMINOPHEN
     Indication: Respiratory tract infection
     Dosage: 1500 MG
     Route: 048
     Dates: start: 20131115, end: 20131115
  7. ACETAMINOPHEN [Concomitant]
     Active Substance: ACETAMINOPHEN
     Indication: Hypertension
     Dosage: 2500 MG
     Route: 048
     Dates: start: 20131116, end: 20131117

REACTIONS (3)
  - Rheumatoid arthritis [Not Recovered/Not Resolved]
  - Hyperuricaemia [Recovered/Resolved]
  - Arthralgia [Recovered/Resolved with Sequelae]

NARRATIVE: CASE EVENT DATE: 20200110
